FAERS Safety Report 10797436 (Version 1)
Quarter: 2015Q1

REPORT INFORMATION
  Report Type: Spontaneous
  Country: US (occurrence: US)
  Receive Date: 20150216
  Receipt Date: 20150216
  Transmission Date: 20150721
  Serious: No
  Sender: FDA-Public Use
  Company Number: US-GLAXOSMITHKLINE-US2015017818

PATIENT
  Age: 29 Year
  Sex: Female

DRUGS (2)
  1. LAMOTRIGINE PROLONGED-RELEASE TABLET [Suspect]
     Active Substance: LAMOTRIGINE
     Indication: SEIZURE
     Dosage: 200 MG, QD
     Route: 048
     Dates: start: 201410
  2. LAMOTRIGINE PROLONGED-RELEASE TABLET [Suspect]
     Active Substance: LAMOTRIGINE
     Dosage: 300 MG, QD
     Route: 048
     Dates: start: 201411

REACTIONS (3)
  - Drug ineffective [Recovering/Resolving]
  - Feeling abnormal [Not Recovered/Not Resolved]
  - Drug administration error [Unknown]

NARRATIVE: CASE EVENT DATE: 201410
